FAERS Safety Report 25230454 (Version 1)
Quarter: 2025Q2

REPORT INFORMATION
  Report Type: Spontaneous
  Country: US (occurrence: US)
  Receive Date: 20250423
  Receipt Date: 20250423
  Transmission Date: 20250716
  Serious: No
  Sender: SYMOGEN
  Company Number: US-PARTNER THERAPEUTICS-2024PTX00002

PATIENT
  Sex: Female

DRUGS (5)
  1. LEUKINE [Suspect]
     Active Substance: SARGRAMOSTIM
     Indication: Metastases to liver
     Dosage: 250 ?G, UNDER THE SKIN, 1X/DAY X 14 DAYS
     Route: 058
     Dates: start: 20240123
  2. LEUKINE [Suspect]
     Active Substance: SARGRAMOSTIM
     Indication: Cholangiocarcinoma
  3. STERILE WATER [Concomitant]
     Active Substance: WATER
  4. VITAMIN D3 [Concomitant]
     Active Substance: CHOLECALCIFEROL
  5. VIVELLE-DOT [Concomitant]
     Active Substance: ESTRADIOL

REACTIONS (2)
  - Blood test abnormal [Unknown]
  - Off label use [Not Recovered/Not Resolved]

NARRATIVE: CASE EVENT DATE: 20240101
